FAERS Safety Report 7773187-0 (Version None)
Quarter: 2011Q3

REPORT INFORMATION
  Report Type: 
  Country: None (occurrence: None)
  Receive Date: 20110922
  Receipt Date: 20110914
  Transmission Date: 20111222
  Serious: Yes (Other)
  Sender: FDA-Public Use
  Company Number: US-SANOFI-AVENTIS-2011SA060814

PATIENT
  Age: 74 Year
  Sex: Male

DRUGS (20)
  1. TERAZOSIN HCL [Concomitant]
  2. MIRTAZAPINE [Concomitant]
  3. ASPIRIN [Concomitant]
  4. PLAVIX [Suspect]
     Indication: STENT PLACEMENT
     Route: 065
     Dates: start: 20110601
  5. METOPROLOL [Concomitant]
  6. SUCRALFATE [Concomitant]
  7. DOCUSATE [Concomitant]
  8. LISINOPRIL [Concomitant]
  9. SIMVASTATIN [Concomitant]
  10. OXYCODONE HCL [Concomitant]
  11. NICOTINE [Concomitant]
  12. PANTOPRAZOLE [Concomitant]
  13. PLAVIX [Suspect]
     Indication: ACUTE MYOCARDIAL INFARCTION
     Route: 065
     Dates: start: 20110601
  14. SENNA [Concomitant]
  15. ROPINIROLE [Concomitant]
  16. CELEXA [Concomitant]
  17. MIRALAX [Concomitant]
  18. VICODIN [Concomitant]
  19. NITROGLYCERIN [Concomitant]
  20. MAGNESIUM HYDROXIDE TAB [Concomitant]

REACTIONS (3)
  - HEAD AND NECK CANCER [None]
  - DYSPHAGIA [None]
  - OROPHARYNGEAL PAIN [None]
